FAERS Safety Report 11774515 (Version 1)
Quarter: 2015Q4

REPORT INFORMATION
  Report Type: Spontaneous
  Country: US (occurrence: US)
  Receive Date: 20151124
  Receipt Date: 20151124
  Transmission Date: 20160304
  Serious: Yes (Hospitalization, Other)
  Sender: FDA-Public Use
  Company Number: US-MALLINCKRODT-T201505100

PATIENT
  Age: 33 Year
  Sex: Male

DRUGS (1)
  1. GABLOFEN [Suspect]
     Active Substance: BACLOFEN
     Indication: MUSCLE SPASTICITY
     Dosage: 846 MCG/DAY
     Route: 037

REACTIONS (2)
  - Central nervous system infection [Unknown]
  - Implant site cellulitis [Recovering/Resolving]

NARRATIVE: CASE EVENT DATE: 20151019
